FAERS Safety Report 6486528-1 (Version None)
Quarter: 2009Q4

REPORT INFORMATION
  Report Type: 
  Country: None (occurrence: None)
  Receive Date: 20091210
  Receipt Date: 20091125
  Transmission Date: 20100525
  Serious: Yes (Hospitalization)
  Sender: FDA-Public Use
  Company Number: FR-JNJFOC-20091201766

PATIENT
  Sex: Female

DRUGS (7)
  1. IXPRIM [Suspect]
     Indication: PAIN
     Route: 048
  2. LIPANOR [Interacting]
     Route: 048
  3. LIPANOR [Interacting]
     Indication: DYSLIPIDAEMIA
     Route: 048
  4. SINTROM [Interacting]
     Indication: ARRHYTHMIA
     Route: 048
  5. COLCHIMAX [Interacting]
     Indication: GOUT
     Route: 048
  6. LASILIX [Concomitant]
  7. AMLOR [Concomitant]

REACTIONS (5)
  - DRUG INTERACTION [None]
  - HAEMATOMA [None]
  - INTERNATIONAL NORMALISED RATIO INCREASED [None]
  - MELAENA [None]
  - NORMOCHROMIC NORMOCYTIC ANAEMIA [None]
